FAERS Safety Report 6644146-6 (Version None)
Quarter: 2010Q1

REPORT INFORMATION
  Report Type: 
  Country: None (occurrence: None)
  Receive Date: 20100322
  Receipt Date: 20100316
  Transmission Date: 20100710
  Serious: Yes (Death, Other)
  Sender: FDA-Public Use
  Company Number: PHHY2010JP12245

PATIENT
  Age: 63 Year
  Sex: Male

DRUGS (2)
  1. ZOMETA [Suspect]
     Indication: METASTASES TO BONE
     Dosage: 4MG/4 WEEKS, 7 TIMES (A TOTAL OF 28MG)
     Route: 042
     Dates: start: 20070101, end: 20070701
  2. PREDONINE [Concomitant]
     Dosage: 10MG/DAY
     Dates: start: 20051101

REACTIONS (9)
  - BACTERIAL INFECTION [None]
  - BONE OPERATION [None]
  - GINGIVAL PAIN [None]
  - OPEN WOUND [None]
  - OSTEONECROSIS [None]
  - PROSTATE CANCER [None]
  - SECONDARY SEQUESTRUM [None]
  - SEQUESTRECTOMY [None]
  - TOOTHACHE [None]
